FAERS Safety Report 13755559 (Version 1)
Quarter: 2017Q3

REPORT INFORMATION
  Report Type: Spontaneous
  Country: US (occurrence: US)
  Receive Date: 20170714
  Receipt Date: 20170714
  Transmission Date: 20171127
  Serious: Yes (Life-Threatening, Hospitalization)
  Sender: FDA-Public Use
  Company Number: None

PATIENT
  Age: 51 Year
  Sex: Female
  Weight: 132 kg

DRUGS (5)
  1. FLUOXETINE [Concomitant]
     Active Substance: FLUOXETINE HYDROCHLORIDE
  2. IBUPROFEN. [Concomitant]
     Active Substance: IBUPROFEN
  3. TOPROL XL [Concomitant]
     Active Substance: METOPROLOL SUCCINATE
  4. EFFEXOR [Concomitant]
     Active Substance: VENLAFAXINE HYDROCHLORIDE
  5. DICLOFENAC [Suspect]
     Active Substance: DICLOFENAC
     Indication: OSTEOARTHRITIS
     Dosage: ?          OTHER DOSE:MG;?TWICE A DAY ORAL?
     Route: 048
     Dates: start: 20170620, end: 20170712

REACTIONS (8)
  - Hypotension [None]
  - Gastric ulcer [None]
  - Gastritis [None]
  - Flank pain [None]
  - Sepsis [None]
  - Pyelonephritis [None]
  - Haematemesis [None]
  - Dyspnoea [None]

NARRATIVE: CASE EVENT DATE: 20170713
